FAERS Safety Report 12919785 (Version 7)
Quarter: 2018Q2

REPORT INFORMATION
  Report Type: Spontaneous
  Country: US (occurrence: US)
  Receive Date: 20161108
  Receipt Date: 20180517
  Transmission Date: 20180711
  Serious: No
  Sender: FDA-Public Use
  Company Number: US-PFIZER INC-2016518190

PATIENT
  Age: 69 Year
  Sex: Female
  Weight: 66.67 kg

DRUGS (2)
  1. XELJANZ XR [Suspect]
     Active Substance: TOFACITINIB CITRATE
     Indication: PAIN
     Dosage: 11 MG, DAILY
     Route: 048
     Dates: start: 2016
  2. XELJANZ XR [Suspect]
     Active Substance: TOFACITINIB CITRATE
     Indication: RHEUMATOID ARTHRITIS

REACTIONS (4)
  - Frustration tolerance decreased [Unknown]
  - Drug dose omission [Unknown]
  - Drug effect delayed [Unknown]
  - Stress [Unknown]

NARRATIVE: CASE EVENT DATE: 201804
